FAERS Safety Report 9932491 (Version 1)
Quarter: 2014Q1

REPORT INFORMATION
  Report Type: Spontaneous
  Country: US (occurrence: US)
  Receive Date: 20140228
  Receipt Date: 20140228
  Transmission Date: 20141002
  Serious: Yes (Other)
  Sender: FDA-Public Use
  Company Number: US-GLAXOSMITHKLINE-A1017595A

PATIENT
  Age: 33 Year
  Sex: Male

DRUGS (1)
  1. LAMICTAL [Suspect]
     Indication: PRODUCT USED FOR UNKNOWN INDICATION
     Dosage: 150MG UNKNOWN
     Route: 065
     Dates: start: 20081023

REACTIONS (3)
  - Rash generalised [Recovering/Resolving]
  - Hypersensitivity [Recovering/Resolving]
  - Stevens-Johnson syndrome [Recovering/Resolving]
